FAERS Safety Report 10258487 (Version 1)
Quarter: 2014Q2

REPORT INFORMATION
  Report Type: Report from Study
  Country: US (occurrence: US)
  Receive Date: 20140625
  Receipt Date: 20140625
  Transmission Date: 20141212
  Serious: Yes (Other)
  Sender: FDA-Public Use
  Company Number: US-ASTELLAS-2014US007232

PATIENT
  Sex: Male

DRUGS (1)
  1. ERLOTINIB [Suspect]
     Indication: LUNG NEOPLASM MALIGNANT
     Dosage: UNK UNK, ONCE DAILY
     Route: 048
     Dates: start: 2014

REACTIONS (3)
  - Intraocular pressure increased [Not Recovered/Not Resolved]
  - Eye haemorrhage [Unknown]
  - Cough [Not Recovered/Not Resolved]
